FAERS Safety Report 12699683 (Version 1)
Quarter: 2016Q3

REPORT INFORMATION
  Report Type: Spontaneous
  Country: BR (occurrence: BR)
  Receive Date: 20160830
  Receipt Date: 20160830
  Transmission Date: 20161109
  Serious: Yes (Other)
  Sender: FDA-Public Use
  Company Number: BR-JNJFOC-20160823017

PATIENT
  Sex: Male

DRUGS (1)
  1. DUROGESIC D-TRANS [Suspect]
     Active Substance: FENTANYL
     Indication: PAIN
     Dosage: TAKING MEDICINE FROM MORE THAN 2 YEARS; FOUR PATCHES OF 25 MCG
     Route: 062

REACTIONS (3)
  - Pain [Unknown]
  - Suicide attempt [Unknown]
  - Dependence [Unknown]
